FAERS Safety Report 12431028 (Version 1)
Quarter: 2016Q2

REPORT INFORMATION
  Report Type: Report from Study
  Country: US (occurrence: US)
  Receive Date: 20160603
  Receipt Date: 20160603
  Transmission Date: 20160815
  Serious: No
  Sender: FDA-Public Use
  Company Number: US-AMGEN-USASL2016066314

PATIENT
  Age: 66 Year
  Sex: Female

DRUGS (1)
  1. ENBREL [Suspect]
     Active Substance: ETANERCEPT
     Indication: RHEUMATOID ARTHRITIS
     Dosage: UNK UNK, QWK
     Route: 065

REACTIONS (7)
  - Injection site extravasation [Unknown]
  - Peripheral swelling [Unknown]
  - Injection site erythema [Recovering/Resolving]
  - Injection site irritation [Unknown]
  - Injection site dryness [Recovering/Resolving]
  - Injection site pain [Unknown]
  - Injection site pruritus [Recovering/Resolving]
